FAERS Safety Report 11685856 (Version 3)
Quarter: 2016Q2

REPORT INFORMATION
  Report Type: Spontaneous
  Country: CA (occurrence: CA)
  Receive Date: 20151030
  Receipt Date: 20160421
  Transmission Date: 20160815
  Serious: Yes (Death)
  Sender: FDA-Public Use
  Company Number: CA-NOVOPROD-468240

PATIENT
  Age: 56 Year
  Sex: Male
  Weight: 62 kg

DRUGS (6)
  1. RIASTAP [Concomitant]
     Active Substance: FIBRINOGEN HUMAN
     Dosage: 4 G, BID
     Route: 042
     Dates: start: 20151016, end: 20151016
  2. PLASMA [Concomitant]
     Active Substance: HUMAN PLASMA
     Dosage: 8 U
     Route: 065
  3. RED BLOOD CELLS [Concomitant]
     Active Substance: HUMAN RED BLOOD CELL
     Dosage: 17 U
     Route: 065
  4. NIASTASE RT [Suspect]
     Active Substance: COAGULATION FACTOR VIIA RECOMBINANT HUMAN
     Indication: PROCEDURAL HAEMORRHAGE
     Dosage: 5 MG RVIIA
     Route: 040
     Dates: start: 20151016, end: 20151016
  5. NIASTASE RT [Suspect]
     Active Substance: COAGULATION FACTOR VIIA RECOMBINANT HUMAN
     Indication: OFF LABEL USE
  6. PLATELETS [Concomitant]
     Active Substance: HUMAN PLATELET, ALLOGENIC
     Dosage: 4 DOSE
     Route: 065

REACTIONS (3)
  - Off label use [Unknown]
  - Post procedural stroke [Fatal]
  - Cerebrovascular accident [Fatal]

NARRATIVE: CASE EVENT DATE: 20151016
